FAERS Safety Report 7262282-0 (Version None)
Quarter: 2011Q1

REPORT INFORMATION
  Report Type: 
  Country: None (occurrence: None)
  Receive Date: 20110130
  Receipt Date: 20101116
  Transmission Date: 20110831
  Serious: Yes (Hospitalization)
  Sender: FDA-Public Use
  Company Number: US-ABBOTT-10P-163-0685710-00

PATIENT
  Sex: Male
  Weight: 77.18 kg

DRUGS (3)
  1. PERCOCET [Concomitant]
     Indication: PAIN
  2. COUMADIN [Concomitant]
     Indication: PRODUCT USED FOR UNKNOWN INDICATION
  3. HUMIRA [Suspect]
     Indication: ANKYLOSING SPONDYLITIS
     Dates: start: 20080528, end: 20100801

REACTIONS (1)
  - ABDOMINAL PAIN [None]
